FAERS Safety Report 18311779 (Version 1)
Quarter: 2020Q3

REPORT INFORMATION
  Report Type: Spontaneous
  Country: US (occurrence: US)
  Receive Date: 20200925
  Receipt Date: 20200925
  Transmission Date: 20201103
  Serious: Yes (Hospitalization, Other)
  Sender: FDA-Public Use
  Company Number: US-GLAXOSMITHKLINE-US2020AMR190246

PATIENT

DRUGS (1)
  1. ZEJULA [Suspect]
     Active Substance: NIRAPARIB
     Indication: FALLOPIAN TUBE CANCER STAGE III
     Dosage: 3 DF(CAPSULE), QD

REACTIONS (5)
  - Near death experience [Unknown]
  - Stomatitis [Not Recovered/Not Resolved]
  - Platelet count abnormal [Unknown]
  - Haemoptysis [Unknown]
  - Oropharyngeal pain [Not Recovered/Not Resolved]
